FAERS Safety Report 12645831 (Version 2)
Quarter: 2016Q3

REPORT INFORMATION
  Report Type: Report from Study
  Country: CO (occurrence: CO)
  Receive Date: 20160811
  Receipt Date: 20160908
  Transmission Date: 20161109
  Serious: Yes (Death, Hospitalization, Other)
  Sender: FDA-Public Use
  Company Number: PHHY2016CO110030

PATIENT
  Age: 70 Year
  Sex: Male
  Weight: 61 kg

DRUGS (2)
  1. SANDOSTATIN LAR DEPOT [Suspect]
     Active Substance: OCTREOTIDE ACETATE
     Indication: NEUROENDOCRINE TUMOUR
     Dosage: 30 MG, UNK
     Route: 030
  2. SANDOSTATIN LAR DEPOT [Suspect]
     Active Substance: OCTREOTIDE ACETATE
     Indication: PITUITARY TUMOUR
     Dosage: 40 MG (2 DF OF 20 MG), QMO
     Route: 030
     Dates: end: 201603

REACTIONS (7)
  - Blood pressure decreased [Unknown]
  - Eating disorder [Unknown]
  - Renal injury [Unknown]
  - General physical health deterioration [Unknown]
  - Cardio-respiratory arrest [Fatal]
  - Pulmonary oedema [Unknown]
  - Hypersomnia [Unknown]

NARRATIVE: CASE EVENT DATE: 20160823
